FAERS Safety Report 9067472 (Version 1)
Quarter: 2013Q1

REPORT INFORMATION
  Report Type: Spontaneous
  Country: IT (occurrence: IT)
  Receive Date: 20130129
  Receipt Date: 20130129
  Transmission Date: 20140127
  Serious: Yes (Other)
  Sender: FDA-Public Use
  Company Number: PHHY2013IT007845

PATIENT
  Sex: Male

DRUGS (3)
  1. ZOMETA [Suspect]
     Indication: METASTASES TO BONE
     Dosage: 4 MG, QMO
     Route: 042
     Dates: start: 20080801
  2. VITAMIN D [Concomitant]
     Indication: OSTEOPOROSIS
     Dosage: 30 DRP, UNK
     Route: 048
     Dates: start: 20070101, end: 20120501
  3. DELTACORTENE [Concomitant]
     Indication: PROSTATE CANCER
     Dosage: 25 MG, UNK
     Route: 048
     Dates: start: 20070101, end: 20121231

REACTIONS (1)
  - Osteonecrosis of jaw [Recovering/Resolving]
